FAERS Safety Report 7518511-9 (Version None)
Quarter: 2011Q2

REPORT INFORMATION
  Report Type: 
  Country: None (occurrence: None)
  Receive Date: 20110602
  Receipt Date: 20110523
  Transmission Date: 20111010
  Serious: Yes (Life-Threatening, Other)
  Sender: FDA-Public Use
  Company Number: JP-ASTELLAS-2011US002367

PATIENT
  Sex: Male

DRUGS (10)
  1. AMBISOME [Suspect]
     Dosage: 165 MG, UID/QD
     Route: 042
     Dates: start: 20101201, end: 20101210
  2. VFEND [Suspect]
     Dosage: 600 MG, UID/QD
     Route: 042
     Dates: start: 20101117, end: 20101125
  3. VFEND [Suspect]
     Dosage: 400 MG, UID/QD
     Route: 042
     Dates: start: 20101202, end: 20110110
  4. VFEND [Suspect]
     Dosage: 400 MG, UID/QD
     Route: 048
     Dates: start: 20110409, end: 20110409
  5. AMBISOME [Suspect]
     Indication: FUNGAL RHINITIS
     Dosage: 220 MG, UID/QD
     Route: 042
     Dates: start: 20101211, end: 20110408
  6. VFEND [Suspect]
     Dosage: 200 MG, UID/QD
     Route: 048
     Dates: start: 20110409, end: 20110409
  7. VFEND [Suspect]
     Indication: FUNGAL RHINITIS
     Dosage: 440 MG, UID/QD
     Route: 042
     Dates: start: 20110111, end: 20110408
  8. FUNGUARD [Suspect]
     Indication: FUNGAL RHINITIS
     Dosage: 150 MG, UID/QD
     Route: 042
     Dates: start: 20101218, end: 20110412
  9. AMBISOME [Suspect]
     Dosage: 120 MG, UID/QD
     Route: 042
     Dates: start: 20101117, end: 20101130
  10. VFEND [Suspect]
     Dosage: 400 MG, UID/QD
     Route: 048
     Dates: start: 20110410

REACTIONS (4)
  - PANCYTOPENIA [None]
  - CHOLESTASIS [None]
  - DRUG INEFFECTIVE [None]
  - RENAL DISORDER [None]
